FAERS Safety Report 18107590 (Version 4)
Quarter: 2020Q3

REPORT INFORMATION
  Report Type: Other
  Country: US (occurrence: US)
  Receive Date: 20200804
  Receipt Date: 20200821
  Transmission Date: 20201103
  Serious: Yes (Life-Threatening)
  Sender: FDA-Public Use
  Company Number: US-ROCHE-2651343

PATIENT
  Sex: Male
  Weight: 80.81 kg

DRUGS (9)
  1. FASENRA [Concomitant]
     Active Substance: BENRALIZUMAB
     Indication: EOSINOPHILIC PNEUMONIA CHRONIC
  2. RITUXAN [Suspect]
     Active Substance: RITUXIMAB
     Indication: EOSINOPHILIC PNEUMONIA CHRONIC
     Dosage: ONGOING: YES
     Route: 042
  3. MYCOPHENOLATE MOFETIL. [Suspect]
     Active Substance: MYCOPHENOLATE MOFETIL
     Indication: EOSINOPHILIC PNEUMONIA CHRONIC
     Route: 048
  4. ALBUTEROL SULFATE. [Concomitant]
     Active Substance: ALBUTEROL SULFATE
     Indication: DYSPNOEA
     Dosage: AS NEEDED
     Route: 055
  5. SYMBICORT [Concomitant]
     Active Substance: BUDESONIDE\FORMOTEROL FUMARATE DIHYDRATE
     Indication: DYSPNOEA
     Dosage: 160/4.5 ;ONGOING: YES
     Route: 055
  6. ROSUVASTATIN. [Concomitant]
     Active Substance: ROSUVASTATIN
     Indication: HYPERLIPIDAEMIA
     Route: 048
  7. TESTOSTERONE. [Concomitant]
     Active Substance: TESTOSTERONE
     Indication: OSTEOPOROSIS
     Route: 030
  8. SYMBICORT [Concomitant]
     Active Substance: BUDESONIDE\FORMOTEROL FUMARATE DIHYDRATE
     Indication: BRONCHOSPASM
  9. XOLAIR [Suspect]
     Active Substance: OMALIZUMAB
     Indication: EOSINOPHILIC PNEUMONIA CHRONIC
     Dosage: ACCORDING TO AGE AND WEIGHT
     Route: 065

REACTIONS (3)
  - Intentional product use issue [Unknown]
  - Pneumothorax [Recovered/Resolved]
  - Off label use [Unknown]

NARRATIVE: CASE EVENT DATE: 2019
